FAERS Safety Report 18533387 (Version 1)
Quarter: 2020Q4

REPORT INFORMATION
  Report Type: Spontaneous
  Country: US (occurrence: US)
  Receive Date: 20201123
  Receipt Date: 20201123
  Transmission Date: 20210114
  Serious: No
  Sender: FDA-Public Use
  Company Number: US-BIOVITRUM-2020US6698

PATIENT
  Sex: Male
  Weight: 10 kg

DRUGS (3)
  1. SYNAGIS [Suspect]
     Active Substance: PALIVIZUMAB
     Indication: CHRONIC RESPIRATORY DISEASE
     Route: 030
     Dates: start: 20200123
  2. SYNAGIS [Suspect]
     Active Substance: PALIVIZUMAB
     Indication: CONGENITAL AORTIC VALVE INCOMPETENCE
  3. SYNAGIS [Suspect]
     Active Substance: PALIVIZUMAB
     Indication: PREMATURE BABY

REACTIONS (14)
  - Gastrooesophageal reflux disease [Unknown]
  - Cough [Unknown]
  - Blood thyroid stimulating hormone increased [Unknown]
  - Decreased activity [Unknown]
  - Rash [Unknown]
  - Hypoacusis [Unknown]
  - Vomiting [Unknown]
  - Pyrexia [Unknown]
  - Constipation [Unknown]
  - Frequent bowel movements [Unknown]
  - Decreased appetite [Unknown]
  - Poor quality sleep [Unknown]
  - Parathyroid disorder [Unknown]
  - Rhinorrhoea [Unknown]
